FAERS Safety Report 23240633 (Version 1)
Quarter: 2023Q4

REPORT INFORMATION
  Report Type: Spontaneous
  Country: US (occurrence: None)
  Receive Date: 20231128
  Receipt Date: 20231128
  Transmission Date: 20240110
  Serious: Yes (Disabling, Other)
  Sender: FDA-Public Use
  Company Number: None

PATIENT
  Age: 75 Year
  Sex: Female
  Weight: 123.75 kg

DRUGS (25)
  1. TEZSPIRE [Suspect]
     Active Substance: TEZEPELUMAB-EKKO
     Indication: Asthma
     Dosage: ONE MONTH SUBCUTANEOUS?
     Route: 058
     Dates: start: 20230908, end: 20231118
  2. DEVICE [Concomitant]
     Active Substance: DEVICE
  3. SEQUENTIAL COMPRESSIONBILATERAL LEGS [Concomitant]
  4. DEVICE [Concomitant]
     Active Substance: DEVICE
  5. LISINOPRIL [Concomitant]
     Active Substance: LISINOPRIL
  6. LEVOTHYROXINE [Concomitant]
     Active Substance: LEVOTHYROXINE
  7. CETIRIZINE HYDROCHLORIDE [Concomitant]
     Active Substance: CETIRIZINE HYDROCHLORIDE
  8. PANTOPRAZOLE [Concomitant]
     Active Substance: PANTOPRAZOLE
  9. TRESIBA [Concomitant]
     Active Substance: INSULIN DEGLUDEC
  10. NOVOLOG [Concomitant]
     Active Substance: INSULIN ASPART
  11. MONTELUKAST [Concomitant]
     Active Substance: MONTELUKAST SODIUM
  12. HYDROCODONE [Concomitant]
     Active Substance: HYDROCODONE
  13. MUCINEX [Concomitant]
     Active Substance: GUAIFENESIN
  14. MAGNESIUM [Concomitant]
     Active Substance: MAGNESIUM
  15. POTASSIUM [Concomitant]
     Active Substance: POTASSIUM
  16. SYMBICORT [Concomitant]
     Active Substance: BUDESONIDE\FORMOTEROL FUMARATE DIHYDRATE
  17. ALBUTEROL SULFATE [Concomitant]
     Active Substance: ALBUTEROL SULFATE
  18. TRIAMCINOLONE [Concomitant]
     Active Substance: TRIAMCINOLONE
  19. VITAMIN D3 [Concomitant]
     Active Substance: CHOLECALCIFEROL
  20. STOOL SOFTENER (DOCUSATE) [Concomitant]
     Active Substance: DOCUSATE
  21. ALBUTEROL SOLUTION FOR NEBULIZER [Concomitant]
  22. LYMPHEDEMA WRAPS [Concomitant]
  23. ROLLATOR [Concomitant]
  24. MUCINEX [Concomitant]
     Active Substance: GUAIFENESIN
  25. CETIRIZINE HYDROCHLORIDE [Concomitant]
     Active Substance: CETIRIZINE HYDROCHLORIDE

REACTIONS (8)
  - Back pain [None]
  - Arthralgia [None]
  - Oropharyngeal pain [None]
  - Bedridden [None]
  - Gait disturbance [None]
  - Gait disturbance [None]
  - Arthralgia [None]
  - Middle insomnia [None]

NARRATIVE: CASE EVENT DATE: 20231118
